FAERS Safety Report 7769976-9 (Version None)
Quarter: 2011Q3

REPORT INFORMATION
  Report Type: 
  Country: None (occurrence: None)
  Receive Date: 20110922
  Receipt Date: 20110916
  Transmission Date: 20111222
  Serious: Yes (Other)
  Sender: FDA-Public Use
  Company Number: MM-GLAXOSMITHKLINE-B0749406A

PATIENT
  Age: 38 Year
  Sex: Female

DRUGS (1)
  1. CEFTAZIDIME SODIUM [Suspect]
     Indication: PROPHYLAXIS
     Route: 058
     Dates: start: 20110914

REACTIONS (3)
  - PRURITUS [None]
  - HYPERSENSITIVITY [None]
  - INJECTION SITE URTICARIA [None]
